FAERS Safety Report 6672461-9 (Version None)
Quarter: 2010Q2

REPORT INFORMATION
  Report Type: 
  Country: None (occurrence: None)
  Receive Date: 20100408
  Receipt Date: 20100329
  Transmission Date: 20101027
  Serious: Yes (Life-Threatening, Hospitalization, Other)
  Sender: FDA-Public Use
  Company Number: GB-NOVOPROD-305901

PATIENT
  Age: 3 Year
  Sex: Male
  Weight: 11 kg

DRUGS (18)
  1. NORDITROPIN [Suspect]
     Indication: BODY HEIGHT BELOW NORMAL
     Dosage: 0.6 MG, QD
     Route: 058
     Dates: start: 20090902, end: 20100205
  2. NEORECORMON [Suspect]
     Indication: ANAEMIA
     Dosage: UNK
     Route: 058
     Dates: start: 20070529, end: 20100205
  3. ALFACALCIDOL [Concomitant]
     Indication: RENAL FAILURE
     Dosage: 200 NG, QD
     Route: 048
     Dates: start: 20090630
  4. CALAMINE [Concomitant]
     Dosage: 1 DF, TID
     Route: 061
     Dates: start: 20100201, end: 20100212
  5. CALCIUM CARBONATE [Concomitant]
     Indication: RENAL FAILURE
     Dosage: 300 MG, QD
     Route: 048
     Dates: start: 20090826
  6. CHLORPHENIRAMINE MALEATE [Concomitant]
     Indication: RENAL FAILURE
     Dosage: 1 MG, QID
     Route: 048
     Dates: start: 20090110
  7. CINACALCET HYDROCHLORIDE [Concomitant]
     Indication: RENAL FAILURE
     Dosage: 3.6 MG, QD
     Route: 048
     Dates: start: 20080229
  8. CLOTRIMAZOLE [Concomitant]
     Dosage: 1 DF, TID
     Route: 061
     Dates: start: 20100201, end: 20100208
  9. COLECALCIFEROL [Concomitant]
     Indication: RENAL FAILURE
     Dosage: UNK
     Route: 048
     Dates: start: 20070709
  10. DOMPERIDONE [Concomitant]
     Indication: RENAL FAILURE
     Dosage: 4.5 MG, QID
     Route: 048
     Dates: start: 20081110
  11. FOLIC ACID [Concomitant]
     Indication: RENAL FAILURE
     Dosage: 1.5 MG, QD
     Route: 048
     Dates: start: 20071002
  12. LOPERAMIDE HYDROCHLORIDE [Concomitant]
     Indication: RENAL FAILURE
     Dosage: 0.5 MG, UNK
     Route: 048
     Dates: start: 20090902
  13. METOCLOPRAMIDE HYDROCHLORIDE [Concomitant]
     Indication: RENAL FAILURE
     Dosage: 1.5 MG, BID
     Route: 048
     Dates: start: 20080313
  14. NYSTATIN [Concomitant]
     Dosage: 100000 UMOL, QID
     Route: 048
     Dates: start: 20100201
  15. ONDANSETRON [Concomitant]
     Indication: RENAL FAILURE
     Dosage: 2.5 MG, TID
     Route: 048
     Dates: start: 20080106
  16. POTASSIUM CHLORIDE [Concomitant]
     Dosage: 5 MMOL, QID
     Route: 048
     Dates: start: 20091013, end: 20100203
  17. SODIUM CHLORIDE [Concomitant]
     Indication: RENAL FAILURE
     Dosage: 10 MMOL/L, BID
     Route: 048
     Dates: start: 20070226
  18. VENOFER [Concomitant]
     Dosage: 30 MG, QW
     Route: 042
     Dates: start: 20090928, end: 20100212

REACTIONS (1)
  - HEPATOBLASTOMA [None]
